FAERS Safety Report 4341154-5 (Version None)
Quarter: 2004Q2

REPORT INFORMATION
  Report Type: 
  Country: None (occurrence: None)
  Receive Date: 20040419
  Receipt Date: 20040329
  Transmission Date: 20050107
  Serious: Yes (Hospitalization)
  Sender: FDA-Public Use
  Company Number: JP-GLAXOSMITHKLINE-B0328576A

PATIENT
  Age: 62 Year
  Sex: Male

DRUGS (3)
  1. PAXIL [Suspect]
     Indication: DEPRESSION
     Dosage: 40MG PER DAY
     Route: 048
     Dates: start: 20040219, end: 20040318
  2. BENZALIN [Concomitant]
     Indication: INSOMNIA
     Dosage: 10MG PER DAY
     Route: 048
     Dates: start: 20040226, end: 20040318
  3. ALOSENN [Concomitant]
     Indication: CONSTIPATION
     Dosage: .5MG PER DAY
     Route: 048
     Dates: start: 20040304

REACTIONS (4)
  - DRUG WITHDRAWAL SYNDROME [None]
  - HYPERKINESIA [None]
  - SPEECH DISORDER [None]
  - STUPOR [None]
